FAERS Safety Report 7750218-5 (Version None)
Quarter: 2011Q3

REPORT INFORMATION
  Report Type: 
  Country: None (occurrence: None)
  Receive Date: 20110914
  Receipt Date: 20110902
  Transmission Date: 20111222
  Serious: Yes (Life-Threatening, Hospitalization)
  Sender: FDA-Public Use
  Company Number: US-BAYER-2011-085215

PATIENT
  Sex: Female

DRUGS (2)
  1. YAZ [Suspect]
     Dosage: UNK
     Route: 048
  2. YASMIN [Suspect]
     Route: 048

REACTIONS (9)
  - FEAR [None]
  - PAIN [None]
  - ANHEDONIA [None]
  - EMOTIONAL DISTRESS [None]
  - PNEUMOTHORAX [None]
  - GALLBLADDER DISORDER [None]
  - DYSPNOEA [None]
  - INJURY [None]
  - ANXIETY [None]
